FAERS Safety Report 11080677 (Version 1)
Quarter: 2015Q2

REPORT INFORMATION
  Report Type: Spontaneous
  Country: US (occurrence: None)
  Receive Date: 20150430
  Receipt Date: 20150430
  Transmission Date: 20150821
  Serious: No
  Sender: FDA-Public Use
  Company Number: None

PATIENT
  Age: 56 Year
  Sex: Female
  Weight: 72.58 kg

DRUGS (4)
  1. PAXIL [Concomitant]
     Active Substance: PAROXETINE HYDROCHLORIDE
  2. FISH OIL [Concomitant]
     Active Substance: FISH OIL
  3. FLONASE [Suspect]
     Active Substance: FLUTICASONE PROPIONATE
     Indication: DYSPNOEA
     Dosage: ONE SPRAY/50MCL ONCE DAILY NASAL SPRAY
     Route: 045
     Dates: start: 20150420, end: 20150424
  4. FLONASE [Suspect]
     Active Substance: FLUTICASONE PROPIONATE
     Indication: SINUS CONGESTION
     Dosage: ONE SPRAY/50MCL ONCE DAILY NASAL SPRAY
     Route: 045
     Dates: start: 20150420, end: 20150424

REACTIONS (3)
  - Fungal infection [None]
  - Oral candidiasis [None]
  - Pharyngitis [None]

NARRATIVE: CASE EVENT DATE: 20150428
